FAERS Safety Report 5518170-0 (Version None)
Quarter: 2007Q4

REPORT INFORMATION
  Report Type: 
  Country: None (occurrence: None)
  Receive Date: 20071113
  Receipt Date: 20071113
  Transmission Date: 20080405
  Serious: Yes (Other)
  Sender: FDA-Public Use
  Company Number: None

PATIENT
  Age: 30 Year
  Sex: Male
  Weight: 83.9154 kg

DRUGS (2)
  1. ABILIFY [Suspect]
     Indication: ATTENTION DEFICIT/HYPERACTIVITY DISORDER
     Dosage: 10MG  DAILY  PO
     Route: 048
     Dates: start: 20070601, end: 20071111
  2. ABILIFY [Suspect]
     Indication: BIPOLAR DISORDER
     Dosage: 10MG  DAILY  PO
     Route: 048
     Dates: start: 20070601, end: 20071111

REACTIONS (14)
  - ARTHRALGIA [None]
  - DISORIENTATION [None]
  - DRY MOUTH [None]
  - ILL-DEFINED DISORDER [None]
  - INSOMNIA [None]
  - MENTAL IMPAIRMENT [None]
  - MUSCLE TWITCHING [None]
  - MUSCULOSKELETAL STIFFNESS [None]
  - MYALGIA [None]
  - PAIN [None]
  - PARKINSON'S DISEASE [None]
  - RESTLESSNESS [None]
  - SUICIDAL IDEATION [None]
  - THROAT TIGHTNESS [None]
